FAERS Safety Report 12603540 (Version 1)
Quarter: 2016Q3

REPORT INFORMATION
  Report Type: Spontaneous
  Country: US (occurrence: US)
  Receive Date: 20160728
  Receipt Date: 20160728
  Transmission Date: 20161109
  Serious: Yes (Hospitalization)
  Sender: FDA-Public Use
  Company Number: US-TEVA-678381USA

PATIENT
  Age: 71 Year
  Sex: Female
  Weight: 86.26 kg

DRUGS (1)
  1. PROAIR HFA [Suspect]
     Active Substance: ALBUTEROL SULFATE
     Route: 055
     Dates: start: 201604

REACTIONS (3)
  - Product taste abnormal [Not Recovered/Not Resolved]
  - Atrial fibrillation [Recovered/Resolved]
  - Dry mouth [Not Recovered/Not Resolved]

NARRATIVE: CASE EVENT DATE: 201604
